FAERS Safety Report 21504151 (Version 1)
Quarter: 2022Q4

REPORT INFORMATION
  Report Type: Spontaneous
  Country: US (occurrence: US)
  Receive Date: 20221025
  Receipt Date: 20221025
  Transmission Date: 20230113
  Serious: Yes (Other)
  Sender: FDA-Public Use
  Company Number: US-PFIZER INC-202201253383

PATIENT
  Age: 73 Year
  Sex: Female
  Weight: 57.15 kg

DRUGS (1)
  1. IBRANCE [Suspect]
     Active Substance: PALBOCICLIB
     Indication: Breast cancer metastatic
     Dosage: 100 MG, CYCLIC (1 TABLET EVERY DAY FOR 21 DAYS THEN OFF 7 DAYS, AND THEN REPEATS)
     Route: 048

REACTIONS (3)
  - Colitis [Unknown]
  - Nasopharyngitis [Unknown]
  - Cough [Not Recovered/Not Resolved]
